FAERS Safety Report 10619376 (Version 3)
Quarter: 2015Q1

REPORT INFORMATION
  Report Type: Spontaneous
  Country: US (occurrence: None)
  Receive Date: 20141126
  Receipt Date: 20150204
  Transmission Date: 20150720
  Serious: Yes (Death, Life-Threatening, Hospitalization, Other)
  Sender: FDA-Public Use
  Company Number: ADR-2014-02228

PATIENT
  Age: 60 Year
  Sex: Male

DRUGS (7)
  1. KETOROLAC [Suspect]
     Active Substance: KETOROLAC\KETOROLAC TROMETHAMINE
  2. MORPHINE [Suspect]
     Active Substance: MORPHINE
  3. IPRATROPIUM [Suspect]
     Active Substance: IPRATROPIUM
  4. ALBUTEROL. [Suspect]
     Active Substance: ALBUTEROL
  5. COMPOUNDED BACLOFEN INTRATHECAL [Suspect]
     Active Substance: BACLOFEN
     Indication: MUSCLE SPASTICITY
  6. COUMADIN [Concomitant]
     Active Substance: WARFARIN SODIUM
  7. PRIALT [Suspect]
     Active Substance: ZICONOTIDE ACETATE

REACTIONS (9)
  - Loss of consciousness [None]
  - Urinary tract infection [None]
  - Respiratory failure [None]
  - Musculoskeletal pain [None]
  - Sinus bradycardia [None]
  - Device issue [None]
  - Chest X-ray abnormal [None]
  - Overdose [None]
  - Cardiac arrest [None]
